FAERS Safety Report 17377485 (Version 1)
Quarter: 2020Q1

REPORT INFORMATION
  Report Type: Spontaneous
  Country: US (occurrence: US)
  Receive Date: 20200122
  Receipt Date: 20200122
  Transmission Date: 20200409
  Serious: No
  Sender: FDA-Public Use
  Company Number: None

PATIENT
  Sex: Male

DRUGS (26)
  1. ACTEMRA [Suspect]
     Active Substance: TOCILIZUMAB
     Indication: RHEUMATOID ARTHRITIS
     Route: 058
     Dates: start: 20190219
  2. BRILINTA [Concomitant]
     Active Substance: TICAGRELOR
  3. CEPHALEXIN. [Concomitant]
     Active Substance: CEPHALEXIN
  4. HYDROCO/APAP [Concomitant]
     Active Substance: ACETAMINOPHEN\HYDROCODONE
  5. TESTOST CYP [Concomitant]
     Active Substance: TESTOSTERONE CYPIONATE
  6. ZOLPIDEM ER [Concomitant]
     Active Substance: ZOLPIDEM TARTRATE
  7. CYMBALTA [Concomitant]
     Active Substance: DULOXETINE HYDROCHLORIDE
  8. FOLBIC [Concomitant]
     Active Substance: CYANOCOBALAMIN\FOLIC ACID\PYRIDOXINE
  9. ROSUVASTATIN. [Concomitant]
     Active Substance: ROSUVASTATIN
  10. AMBIEN [Concomitant]
     Active Substance: ZOLPIDEM TARTRATE
  11. MINOCYCLINE [Concomitant]
     Active Substance: MINOCYCLINE HYDROCHLORIDE
  12. RISEDRONATE [Concomitant]
     Active Substance: RISEDRONATE SODIUM
  13. TADALAFIL. [Concomitant]
     Active Substance: TADALAFIL
  14. TRAMADOL HCL [Concomitant]
     Active Substance: TRAMADOL HYDROCHLORIDE
  15. IBUPROFEN. [Concomitant]
     Active Substance: IBUPROFEN
  16. LYRICA [Concomitant]
     Active Substance: PREGABALIN
  17. TIZANIDINE. [Concomitant]
     Active Substance: TIZANIDINE
  18. ZOLPIDEM [Concomitant]
     Active Substance: ZOLPIDEM TARTRATE
  19. METHOTREXATE. [Concomitant]
     Active Substance: METHOTREXATE
  20. PRALUENT [Concomitant]
     Active Substance: ALIROCUMAB
  21. PREGABALIN. [Concomitant]
     Active Substance: PREGABALIN
  22. INSULIN [Concomitant]
     Active Substance: INSULIN NOS
  23. LOSARTAN POT [Concomitant]
     Active Substance: LOSARTAN POTASSIUM
  24. DULOXETINE. [Concomitant]
     Active Substance: DULOXETINE
  25. CYCLOBENZAPR [Concomitant]
     Active Substance: CYCLOBENZAPRINE
  26. PREDNISONE. [Concomitant]
     Active Substance: PREDNISONE

REACTIONS (2)
  - Spinal operation [None]
  - Therapy cessation [None]
